FAERS Safety Report 13318059 (Version 4)
Quarter: 2017Q2

REPORT INFORMATION
  Report Type: Report from Study
  Country: RU (occurrence: RU)
  Receive Date: 20170310
  Receipt Date: 20170424
  Transmission Date: 20170830
  Serious: Yes (Hospitalization)
  Sender: FDA-Public Use
  Company Number: RU-ROCHE-1902523

PATIENT
  Age: 60 Year
  Sex: Male
  Weight: 76 kg

DRUGS (12)
  1. ACETAZOLAMIDUM [Concomitant]
     Indication: PROPHYLAXIS
     Route: 048
     Dates: start: 201612
  2. FAMOTIDINUM [Concomitant]
     Route: 048
     Dates: start: 20170214, end: 20170222
  3. SODIUM CHLORIDE. [Concomitant]
     Active Substance: SODIUM CHLORIDE
     Route: 042
     Dates: start: 20170220, end: 20170220
  4. CIPROFLOXACINUM [Concomitant]
     Route: 048
     Dates: start: 20170227, end: 20170302
  5. ONDANSETRONUM [Concomitant]
     Active Substance: ONDANSETRON
     Route: 042
     Dates: start: 20170220, end: 20170222
  6. FLUCONAZOLUM [Concomitant]
     Indication: STOMATITIS
     Route: 048
     Dates: start: 20170305, end: 20170305
  7. ETOPOSIDE. [Suspect]
     Active Substance: ETOPOSIDE
     Indication: SMALL CELL LUNG CANCER
     Dosage: INITIAL DOSE AND FREQUENCY PER PROTOCOL ?THE MOST RECENT DOSE OF ETOPOSIDE 190MG PRIOR TO THE EVENT
     Route: 042
     Dates: start: 20170220
  8. SODIUM CHLORIDE. [Concomitant]
     Active Substance: SODIUM CHLORIDE
     Route: 042
     Dates: start: 20170220, end: 20170220
  9. LOPERAMIDUM [Concomitant]
     Route: 048
     Dates: start: 20170224, end: 20170228
  10. CARBOPLATIN. [Suspect]
     Active Substance: CARBOPLATIN
     Indication: SMALL CELL LUNG CANCER
     Dosage: INITIAL DOSE AND FREQUENCY PER PROTOCOL; AUC OF 5 MG/ML/MIN ?THE MOST RECENT DOSE OF CARBOPLATIN 555
     Route: 042
     Dates: start: 20170220
  11. SODIUM CHLORIDE. [Concomitant]
     Active Substance: SODIUM CHLORIDE
     Route: 042
     Dates: start: 20170220, end: 20170220
  12. ATEZOLIZUMAB [Suspect]
     Active Substance: ATEZOLIZUMAB
     Indication: SMALL CELL LUNG CANCER
     Dosage: FREQUENCY PER PROTOCOL?THE MOST RECENT DOSE OF BLINDED ATEZOLIZUMAB WAS ON 20/FEB/2017, 1200 MG
     Route: 042

REACTIONS (3)
  - Leukopenia [Recovered/Resolved]
  - Neutropenia [Recovered/Resolved]
  - Thrombocytopenia [Recovered/Resolved]

NARRATIVE: CASE EVENT DATE: 20170303
